FAERS Safety Report 6538225-1 (Version None)
Quarter: 2010Q1

REPORT INFORMATION
  Report Type: 
  Country: None (occurrence: None)
  Receive Date: 20100110
  Receipt Date: 20091224
  Transmission Date: 20100710
  Serious: Yes (Hospitalization)
  Sender: FDA-Public Use
  Company Number: JP-001308

PATIENT
  Age: 73 Year
  Sex: Male

DRUGS (1)
  1. DESMOPRESSIN ACETATE (DESMOPRESSIN ACETATE) NASAL SPRAY [Suspect]
     Indication: DIABETES INSIPIDUS
     Dosage: NASAL
     Route: 045
     Dates: start: 20091217

REACTIONS (7)
  - ELECTROENCEPHALOGRAM ABNORMAL [None]
  - HYPERAMMONAEMIA [None]
  - LOSS OF CONSCIOUSNESS [None]
  - METABOLIC DISORDER [None]
  - PSEUDOMONAS INFECTION [None]
  - PYREXIA [None]
  - SPEECH DISORDER [None]
